FAERS Safety Report 13718228 (Version 2)
Quarter: 2017Q3

REPORT INFORMATION
  Report Type: Spontaneous
  Country: GR (occurrence: GR)
  Receive Date: 20170705
  Receipt Date: 20170726
  Transmission Date: 20171127
  Serious: Yes (Other)
  Sender: FDA-Public Use
  Company Number: GR-JNJFOC-20170527027

PATIENT
  Age: 42 Year
  Sex: Male

DRUGS (3)
  1. TRANXENE T-TAB [Concomitant]
     Active Substance: CLORAZEPATE DIPOTASSIUM
     Indication: STRESS
     Dosage: 1/2-0-1
     Route: 065
     Dates: start: 20170523, end: 201706
  2. ZYPREXA [Concomitant]
     Active Substance: OLANZAPINE
     Indication: STRESS
     Dosage: 0-0-1
     Route: 065
     Dates: start: 20170523, end: 201706
  3. TOPAMAC [Suspect]
     Active Substance: TOPIRAMATE
     Indication: STRESS
     Route: 048
     Dates: start: 20170523, end: 201706

REACTIONS (4)
  - Gastric ulcer [Recovering/Resolving]
  - Product use in unapproved indication [Unknown]
  - Oesophageal stenosis [Recovering/Resolving]
  - Off label use [Unknown]

NARRATIVE: CASE EVENT DATE: 201705
